FAERS Safety Report 23123328 (Version 2)
Quarter: 2023Q4

REPORT INFORMATION
  Report Type: Spontaneous
  Country: IT (occurrence: IT)
  Receive Date: 20231030
  Receipt Date: 20231129
  Transmission Date: 20240110
  Serious: Yes (Hospitalization, Other)
  Sender: FDA-Public Use
  Company Number: IT-Accord-379137

PATIENT
  Age: 73 Year
  Sex: Male
  Weight: 59 kg

DRUGS (14)
  1. CISPLATIN [Suspect]
     Active Substance: CISPLATIN
     Indication: Cholangiocarcinoma
     Dosage: D 1,8 Q3W
     Route: 042
     Dates: start: 20230413, end: 20230601
  2. GEMCITABINE [Suspect]
     Active Substance: GEMCITABINE
     Indication: Cholangiocarcinoma
     Dosage: D 1,8Q3W
     Route: 042
     Dates: start: 20230413, end: 20230601
  3. METFORMIN [Concomitant]
     Active Substance: METFORMIN HYDROCHLORIDE
     Dates: start: 2000
  4. GLICLAZIDE [Concomitant]
     Active Substance: GLICLAZIDE
     Dates: start: 2000
  5. IRBESARTAN [Concomitant]
     Active Substance: IRBESARTAN
     Dates: start: 2000
  6. EMPAGLIFLOZIN [Concomitant]
     Active Substance: EMPAGLIFLOZIN
     Dates: start: 2000
  7. LINAGLIPTIN [Concomitant]
     Active Substance: LINAGLIPTIN
     Dates: start: 2000, end: 20230704
  8. SIMVASTATIN [Concomitant]
     Active Substance: SIMVASTATIN
     Dates: start: 2000
  9. ALLOPURINOL [Concomitant]
     Active Substance: ALLOPURINOL
     Dates: start: 2000
  10. RIFAXIMIN [Concomitant]
     Active Substance: RIFAXIMIN
     Dates: start: 2018
  11. GEMCITABINE [Suspect]
     Active Substance: GEMCITABINE
     Indication: Cholangiocarcinoma
     Route: 042
     Dates: start: 20230810
  12. CISPLATIN [Suspect]
     Active Substance: CISPLATIN
     Indication: Cholangiocarcinoma
     Route: 042
     Dates: start: 20230810
  13. GEMCITABINE [Suspect]
     Active Substance: GEMCITABINE
     Indication: Cholangiocarcinoma
     Dosage: D 1,8Q3W
     Route: 042
     Dates: start: 20230615, end: 20230713
  14. CISPLATIN [Suspect]
     Active Substance: CISPLATIN
     Indication: Cholangiocarcinoma
     Dosage: D 1,8 Q3W
     Route: 042
     Dates: start: 20230615, end: 20230713

REACTIONS (3)
  - Pneumonia legionella [Recovering/Resolving]
  - Lymphopenia [Unknown]
  - Anaemia [Unknown]

NARRATIVE: CASE EVENT DATE: 20230717
